FAERS Safety Report 6805246-0 (Version None)
Quarter: 2010Q2

REPORT INFORMATION
  Report Type: 
  Country: None (occurrence: None)
  Receive Date: 20100628
  Receipt Date: 20071002
  Transmission Date: 20101027
  Serious: No
  Sender: FDA-Public Use
  Company Number: US-PFIZER INC-2007083821

PATIENT
  Age: 18 Year
  Sex: Male

DRUGS (2)
  1. GEODON [Suspect]
     Indication: AFFECTIVE DISORDER
     Dates: start: 20070707
  2. ZYPREXA [Concomitant]

REACTIONS (7)
  - AFFECTIVE DISORDER [None]
  - DIZZINESS [None]
  - GASTRITIS [None]
  - NAUSEA [None]
  - RASH [None]
  - TREMOR [None]
  - WEIGHT DECREASED [None]
